FAERS Safety Report 6173857-4 (Version None)
Quarter: 2009Q2

REPORT INFORMATION
  Report Type: 
  Country: None (occurrence: None)
  Receive Date: 20090429
  Receipt Date: 20090429
  Transmission Date: 20091009
  Serious: Yes (Other)
  Sender: FDA-Public Use
  Company Number: None

PATIENT
  Age: 35 Year
  Sex: Male

DRUGS (2)
  1. PREDNISONE [Suspect]
     Indication: TRANSPLANT
     Dates: start: 20090304, end: 20090417
  2. CIPROFLOXACIN [Suspect]

REACTIONS (1)
  - TENDONITIS [None]
